FAERS Safety Report 20335528 (Version 1)
Quarter: 2022Q1

REPORT INFORMATION
  Report Type: Spontaneous
  Country: US (occurrence: US)
  Receive Date: 20220114
  Receipt Date: 20220114
  Transmission Date: 20220423
  Serious: Yes (Other)
  Sender: FDA-Public Use
  Company Number: US-NOVARTISTESTPH-NVSC2022US005927

PATIENT
  Sex: Female

DRUGS (1)
  1. BEOVU [Suspect]
     Active Substance: BROLUCIZUMAB-DBLL
     Indication: Product used for unknown indication
     Dosage: UNK
     Route: 065
     Dates: start: 20200116

REACTIONS (10)
  - Retinal vascular occlusion [Unknown]
  - Retinal vasculitis [Unknown]
  - Uveitis [Unknown]
  - Visual impairment [Unknown]
  - Injury [Unknown]
  - Pain [Unknown]
  - Deformity [Unknown]
  - Anxiety [Unknown]
  - Emotional distress [Unknown]
  - Anhedonia [Unknown]

NARRATIVE: CASE EVENT DATE: 20200201
